FAERS Safety Report 5188331-1 (Version None)
Quarter: 2006Q4

REPORT INFORMATION
  Report Type: 
  Country: None (occurrence: None)
  Receive Date: 20061221
  Receipt Date: 20061208
  Transmission Date: 20070319
  Serious: Yes (Other)
  Sender: FDA-Public Use
  Company Number: CA-ELI_LILLY_AND_COMPANY-CA200612003050

PATIENT
  Age: 62 Year
  Sex: Female

DRUGS (4)
  1. FORTEO [Suspect]
     Indication: OSTEOPOROSIS
     Dosage: 20 UG, DAILY (1/D)
     Route: 058
     Dates: start: 20051118
  2. CALCIUM [Concomitant]
  3. VITAMIN D [Concomitant]
  4. VITAMIN CAP [Concomitant]

REACTIONS (2)
  - DERMATOFIBROSARCOMA [None]
  - SKIN NEOPLASM EXCISION [None]
